FAERS Safety Report 5765569-3 (Version None)
Quarter: 2008Q2

REPORT INFORMATION
  Report Type: 
  Country: None (occurrence: None)
  Receive Date: 20080611
  Receipt Date: 20080605
  Transmission Date: 20081010
  Serious: Yes (Hospitalization)
  Sender: FDA-Public Use
  Company Number: FR-ASTRAZENECA-2008CG00883

PATIENT
  Sex: Female

DRUGS (1)
  1. XYLOCAINE 5% NAPHAZOLINE [Suspect]
     Indication: LOCAL ANAESTHESIA
     Route: 045
     Dates: start: 20080601, end: 20080601

REACTIONS (3)
  - HYPOTENSION [None]
  - MALAISE [None]
  - TACHYCARDIA [None]
